FAERS Safety Report 7650254-3 (Version None)
Quarter: 2011Q3

REPORT INFORMATION
  Report Type: 
  Country: None (occurrence: None)
  Receive Date: 20110802
  Receipt Date: 20110722
  Transmission Date: 20111222
  Serious: Yes (Hospitalization)
  Sender: FDA-Public Use
  Company Number: SK-ROCHE-792099

PATIENT
  Sex: Female
  Weight: 65 kg

DRUGS (2)
  1. TARKA [Concomitant]
     Dates: start: 19980101, end: 20110719
  2. BEVACIZUMAB [Suspect]
     Indication: OVARIAN CANCER
     Dosage: LAST DOSE PRIOR TO SAE: 12 JULY 2011
     Route: 042
     Dates: start: 20110712

REACTIONS (2)
  - SINUS TACHYCARDIA [None]
  - HYPERTENSION [None]
